FAERS Safety Report 6156172-4 (Version None)
Quarter: 2009Q2

REPORT INFORMATION
  Report Type: 
  Country: None (occurrence: None)
  Receive Date: 20090415
  Receipt Date: 20090409
  Transmission Date: 20091009
  Serious: No
  Sender: FDA-Public Use
  Company Number: US-B.I. PHARMACEUTICALS,INC./RIDGEFIELD-2009-BP-04461BP

PATIENT
  Sex: Female

DRUGS (3)
  1. FLOMAX [Suspect]
     Indication: NEPHROLITHIASIS
     Dosage: .4MG
     Route: 048
     Dates: start: 20090319, end: 20090409
  2. ROCALTROL [Concomitant]
     Indication: PARATHYROIDECTOMY
  3. CALCIUM [Concomitant]
     Indication: PARATHYROIDECTOMY

REACTIONS (1)
  - BLOOD CALCIUM DECREASED [None]
